FAERS Safety Report 7023229-5 (Version None)
Quarter: 2010Q3

REPORT INFORMATION
  Report Type: 
  Country: None (occurrence: None)
  Receive Date: 20100930
  Receipt Date: 20100920
  Transmission Date: 20110219
  Serious: Yes (Other)
  Sender: FDA-Public Use
  Company Number: US-PFIZER INC-2010119450

PATIENT
  Sex: Female
  Weight: 83.9 kg

DRUGS (8)
  1. ZOLOFT [Suspect]
     Indication: DEPRESSION
     Dosage: 150 MG, 1X/DAY
  2. PRISTIQ [Suspect]
     Indication: DEPRESSION
     Dosage: 50 MG, 1X/DAY
     Dates: start: 20100908
  3. BUSPAR [Concomitant]
     Dosage: UNK
  4. LORAZEPAM [Concomitant]
  5. PERCOCET [Concomitant]
     Dosage: UNK
  6. HYDROCHLOROTHIAZIDE [Concomitant]
     Dosage: UNK
  7. MULTI-VITAMINS [Concomitant]
     Indication: OBESITY SURGERY
     Dosage: UNK
  8. VITAMIN B-12 [Concomitant]
     Indication: OBESITY SURGERY
     Dosage: UNK
     Route: 060

REACTIONS (5)
  - ANXIETY [None]
  - DRUG INEFFECTIVE [None]
  - HIP SURGERY [None]
  - NERVOUSNESS [None]
  - WRONG TECHNIQUE IN DRUG USAGE PROCESS [None]
